FAERS Safety Report 15620850 (Version 1)
Quarter: 2018Q4

REPORT INFORMATION
  Report Type: Spontaneous
  Country: US (occurrence: US)
  Receive Date: 20181115
  Receipt Date: 20181115
  Transmission Date: 20190205
  Serious: No
  Sender: FDA-Public Use
  Company Number: US-SA-2018SA312869

PATIENT
  Sex: Female

DRUGS (15)
  1. METHOTREXATE. [Suspect]
     Active Substance: METHOTREXATE
  2. CODEINE [Suspect]
     Active Substance: CODEINE
  3. PREDNISONE. [Concomitant]
     Active Substance: PREDNISONE
  4. RITUXIMAB. [Suspect]
     Active Substance: RITUXIMAB
  5. ULTRAM [TRAMADOL HYDROCHLORIDE] [Concomitant]
  6. XALATAN [Concomitant]
     Active Substance: LATANOPROST
  7. CELEBREX [Concomitant]
     Active Substance: CELECOXIB
  8. ATENOLOL. [Concomitant]
     Active Substance: ATENOLOL
  9. TIMOPTIC [Concomitant]
     Active Substance: TIMOLOL MALEATE
  10. ARAVA [Suspect]
     Active Substance: LEFLUNOMIDE
  11. GABAPENTIN. [Suspect]
     Active Substance: GABAPENTIN
  12. HCTZ [Concomitant]
     Active Substance: HYDROCHLOROTHIAZIDE
  13. DOXEPIN [Concomitant]
     Active Substance: DOXEPIN
  14. SULFASALAZINE. [Suspect]
     Active Substance: SULFASALAZINE
  15. ZOLOFT [Concomitant]
     Active Substance: SERTRALINE HYDROCHLORIDE

REACTIONS (4)
  - Rash [Unknown]
  - Dyspepsia [Unknown]
  - Urinary tract infection [Unknown]
  - Cognitive disorder [Unknown]
